FAERS Safety Report 5092949-4 (Version None)
Quarter: 2006Q3

REPORT INFORMATION
  Report Type: 
  Country: None (occurrence: None)
  Receive Date: 20060726
  Receipt Date: 20060517
  Transmission Date: 20061208
  Serious: No
  Sender: FDA-Public Use
  Company Number: ZICO001269

PATIENT
  Age: 51 Year
  Sex: Female

DRUGS (9)
  1. PRIALT [Suspect]
     Indication: PAIN
     Dosage: 0.05 UG, ONCE/HOUR, INTRATHECAL; SEE IMAGE
     Route: 037
     Dates: end: 20050401
  2. PRIALT [Suspect]
     Indication: PAIN
     Dosage: 0.05 UG, ONCE/HOUR, INTRATHECAL; SEE IMAGE
     Route: 037
     Dates: start: 20050101, end: 20050706
  3. PRIALT [Suspect]
     Indication: PAIN
     Dosage: 0.05 UG, ONCE/HOUR, INTRATHECAL; SEE IMAGE
     Route: 037
     Dates: start: 20000101
  4. PRIALT [Suspect]
     Indication: PAIN
     Dosage: 0.05 UG, ONCE/HOUR, INTRATHECAL; SEE IMAGE
     Route: 037
     Dates: start: 20050401
  5. FENTANYL [Concomitant]
  6. ACTIQ (SUGAR-FREE) [Concomitant]
  7. DURAGESIC-100 [Concomitant]
  8. METHADONE HCL [Concomitant]
  9. OXYCODONE HCL [Concomitant]

REACTIONS (5)
  - DERMATITIS EXFOLIATIVE [None]
  - DYSGEUSIA [None]
  - NAUSEA [None]
  - VOMITING [None]
  - WEIGHT DECREASED [None]
